FAERS Safety Report 7632294-3 (Version None)
Quarter: 2011Q3

REPORT INFORMATION
  Report Type: 
  Country: None (occurrence: None)
  Receive Date: 20110725
  Receipt Date: 20100913
  Transmission Date: 20111222
  Serious: No
  Sender: FDA-Public Use
  Company Number: US-BRISTOL-MYERS SQUIBB COMPANY-15199524

PATIENT
  Age: 90 Year
  Sex: Male
  Weight: 78 kg

DRUGS (7)
  1. NORVASC [Concomitant]
  2. TOPROL-XL [Concomitant]
  3. LIPITOR [Concomitant]
  4. VITAMIN D [Concomitant]
  5. MICARDIS [Concomitant]
  6. COUMADIN [Suspect]
  7. CLINDAMYCIN [Suspect]
     Indication: CHRONIC SINUSITIS

REACTIONS (2)
  - INTERNATIONAL NORMALISED RATIO DECREASED [None]
  - DRUG INEFFECTIVE [None]
